FAERS Safety Report 14678821 (Version 4)
Quarter: 2018Q3

REPORT INFORMATION
  Report Type: Spontaneous
  Country: FR (occurrence: FR)
  Receive Date: 20180326
  Receipt Date: 20180809
  Transmission Date: 20181010
  Serious: Yes (Hospitalization, Other)
  Sender: FDA-Public Use
  Company Number: FR-CELGENEUS-FRA-20180206336

PATIENT
  Age: 78 Year
  Sex: Female
  Weight: 50 kg

DRUGS (11)
  1. ALLOPURINOL. [Concomitant]
     Active Substance: ALLOPURINOL
     Indication: PRODUCT USED FOR UNKNOWN INDICATION
     Dosage: 300 MILLIGRAM
     Route: 065
     Dates: start: 20171230, end: 20180111
  2. CIPROFLOXACINE [Concomitant]
     Active Substance: CIPROFLOXACIN
     Indication: INFECTION
     Dosage: 1 GRAM
     Route: 048
     Dates: start: 20180126, end: 20180131
  3. BACTRIM [Concomitant]
     Active Substance: SULFAMETHOXAZOLE\TRIMETHOPRIM
     Indication: PRODUCT USED FOR UNKNOWN INDICATION
     Route: 065
  4. SPIRAMYCIN [Concomitant]
     Active Substance: SPIRAMYCIN
     Indication: PRODUCT USED FOR UNKNOWN INDICATION
     Route: 065
     Dates: start: 20180207, end: 20180208
  5. BIPRETERAX [Concomitant]
     Active Substance: INDAPAMIDE\PERINDOPRIL
     Indication: PRODUCT USED FOR UNKNOWN INDICATION
     Dosage: 10 MG/2.5 MG
     Route: 048
  6. IXAZOMIB [Concomitant]
     Active Substance: IXAZOMIB
     Indication: PLASMA CELL MYELOMA
     Dosage: 4 MILLIGRAM
     Route: 048
     Dates: start: 20180124
  7. VENLAFAXINE [Concomitant]
     Active Substance: VENLAFAXINE HYDROCHLORIDE
     Indication: DEPRESSION
     Route: 048
  8. DOLIPRANE [Concomitant]
     Active Substance: ACETAMINOPHEN
     Indication: PAIN
     Route: 065
  9. DEXAMETHASONE. [Concomitant]
     Active Substance: DEXAMETHASONE
     Indication: PLASMA CELL MYELOMA
     Dosage: 40 MILLIGRAM
     Route: 048
     Dates: start: 20180122, end: 20180202
  10. REVLIMID [Suspect]
     Active Substance: LENALIDOMIDE
     Indication: PLASMA CELL MYELOMA
     Dosage: 25 MILLIGRAM
     Route: 048
     Dates: end: 20180202
  11. AUGMENTIN [Concomitant]
     Active Substance: AMOXICILLIN\CLAVULANATE POTASSIUM
     Indication: INFECTION
     Dosage: 3 GRAM
     Route: 048
     Dates: start: 20180126, end: 20180202

REACTIONS (19)
  - Hepatic failure [Recovering/Resolving]
  - Vomiting [Recovered/Resolved]
  - Staphylococcal sepsis [Recovered/Resolved]
  - Toxic skin eruption [Recovered/Resolved]
  - Skin burning sensation [Unknown]
  - Pyrexia [Recovered/Resolved]
  - Infection [Recovered/Resolved]
  - Hepatocellular injury [Recovering/Resolving]
  - Renal failure [Recovering/Resolving]
  - Weight decreased [Recovered/Resolved]
  - Rash [Recovered/Resolved]
  - Hyperthermia [Recovered/Resolved]
  - Anaemia [Not Recovered/Not Resolved]
  - Gastroenteritis [Recovered/Resolved]
  - Oral discomfort [Recovered/Resolved]
  - Lung infection [Recovering/Resolving]
  - Fatigue [Recovered/Resolved]
  - Cheilitis [Unknown]
  - Mucosal inflammation [Recovered/Resolved]

NARRATIVE: CASE EVENT DATE: 20171231
